FAERS Safety Report 25625515 (Version 1)
Quarter: 2025Q3

REPORT INFORMATION
  Report Type: Spontaneous
  Country: EU (occurrence: EU)
  Receive Date: 20250731
  Receipt Date: 20250731
  Transmission Date: 20251020
  Serious: Yes (Other)
  Sender: TEVA
  Company Number: None

PATIENT
  Age: 48 Year
  Sex: Male
  Weight: 81 kg

DRUGS (1)
  1. FLUTICASONE [Suspect]
     Active Substance: FLUTICASONE
     Indication: Seasonal allergy
     Dosage: 2 SPRAYS IN EACH NOSTRIL ONCE A DAY, BRAND NAME NOT SPECIFIED, 50UG/DO, BATCH NUMBER: LOT232742?F...
     Route: 065
     Dates: start: 20200201, end: 20240601

REACTIONS (1)
  - Central serous chorioretinopathy [Not Recovered/Not Resolved]
